FAERS Safety Report 4623089-3 (Version None)
Quarter: 2005Q1

REPORT INFORMATION
  Report Type: 
  Country: None (occurrence: None)
  Receive Date: 20050328
  Receipt Date: 20050328
  Transmission Date: 20050727
  Serious: Yes (Life-Threatening)
  Sender: FDA-Public Use
  Company Number: None

PATIENT
  Age: 63 Year
  Sex: Female
  Weight: 58.9676 kg

DRUGS (5)
  1. SYNERCID [Suspect]
     Indication: ENTEROCOCCAL INFECTION
     Dosage: 450 MG   EVERY 8 HOURS   INTRAVENOUS
     Route: 042
     Dates: start: 20050213, end: 20050217
  2. AMIKACIN [Concomitant]
  3. CEFEPIME [Concomitant]
  4. SEPTRA [Concomitant]
  5. VORICONAZOLE [Concomitant]

REACTIONS (2)
  - BLOOD BILIRUBIN INCREASED [None]
  - LIVER FUNCTION TEST ABNORMAL [None]
